FAERS Safety Report 4699727-6 (Version None)
Quarter: 2005Q2

REPORT INFORMATION
  Report Type: 
  Country: None (occurrence: None)
  Receive Date: 20050207
  Receipt Date: 20050207
  Transmission Date: 20051028
  Serious: No
  Sender: FDA-Public Use
  Company Number: None

PATIENT
  Age: 67 Year
  Sex: Female
  Weight: 98.8842 kg

DRUGS (7)
  1. WARFARIN SODIUM [Suspect]
     Indication: PULMONARY EMBOLISM
     Dosage: CURRENTLY ON COUMADIN 5MG 5XWK/MG 2X/WK 7 MG 2 X WK
     Dates: start: 20020101
  2. ZOLOFT [Concomitant]
  3. CLONIDINE [Concomitant]
  4. MECLIZINE [Concomitant]
  5. ATORVASTATIN CALCIUM [Concomitant]
  6. HYDROCHLOROTHIAZIDE [Concomitant]
  7. EZETIMIBE [Concomitant]

REACTIONS (4)
  - DRUG EFFECT DECREASED [None]
  - DRUG INEFFECTIVE [None]
  - INTERNATIONAL NORMALISED RATIO ABNORMAL [None]
  - PROTHROMBIN TIME ABNORMAL [None]
